FAERS Safety Report 9904655 (Version 2)
Quarter: 2014Q1

REPORT INFORMATION
  Report Type: Spontaneous
  Country: US (occurrence: US)
  Receive Date: 20140218
  Receipt Date: 20140226
  Transmission Date: 20141002
  Serious: Yes (Hospitalization)
  Sender: FDA-Public Use
  Company Number: US-BAYER-2014-024311

PATIENT
  Age: 25 Year
  Sex: Female
  Weight: 56.69 kg

DRUGS (5)
  1. MIRENA [Suspect]
     Indication: CONTRACEPTION
     Dosage: 20 MCG/24HR, CONT
     Route: 015
     Dates: start: 20120321, end: 20130514
  2. FERROUS SULFATE [Concomitant]
     Dosage: 325 MG, UNK
  3. IBUPROFEN [Concomitant]
     Dosage: 600 ?G, UNK
  4. DOCQLACE [Concomitant]
     Dosage: 100 MG, UNK
  5. NITROFURANTOIN [Concomitant]
     Dosage: 100 MG, UNK

REACTIONS (7)
  - Uterine perforation [None]
  - Pelvic pain [None]
  - Depression [None]
  - Anxiety [None]
  - Device issue [None]
  - Injury [None]
  - Emotional distress [None]
